FAERS Safety Report 21468270 (Version 1)
Quarter: 2022Q4

REPORT INFORMATION
  Report Type: Spontaneous
  Country: US (occurrence: US)
  Receive Date: 20221017
  Receipt Date: 20221017
  Transmission Date: 20230113
  Serious: No
  Sender: FDA-Public Use
  Company Number: US-NEUROCRINE BIOSCIENCES INC.-2022NBI07200

PATIENT

DRUGS (5)
  1. INGREZZA [Suspect]
     Active Substance: VALBENAZINE
     Indication: Tardive dyskinesia
     Dosage: 80 MILLIGRAM
     Route: 065
  2. INGREZZA [Suspect]
     Active Substance: VALBENAZINE
     Dosage: 60 MILLIGRAM
     Route: 065
  3. INGREZZA [Suspect]
     Active Substance: VALBENAZINE
     Dosage: 40 MILLIGRAM
     Route: 065
  4. LITHIUM [Concomitant]
     Active Substance: LITHIUM
     Dosage: 600 MILLIGRAM, BID
     Route: 065
  5. FLUPHENAZINE [Concomitant]
     Active Substance: FLUPHENAZINE
     Dosage: 10 MILLIGRAM, BID
     Route: 065

REACTIONS (1)
  - Tremor [Unknown]
